FAERS Safety Report 10614527 (Version 2)
Quarter: 2014Q4

REPORT INFORMATION
  Report Type: Report from Study
  Country: BR (occurrence: BR)
  Receive Date: 20141130
  Receipt Date: 20141130
  Transmission Date: 20150529
  Serious: Yes (Other)
  Sender: FDA-Public Use
  Company Number: PHHY2014BR139531

PATIENT
  Sex: Male
  Weight: 103 kg

DRUGS (5)
  1. ENALAPRIL [Concomitant]
     Active Substance: ENALAPRIL
     Indication: HYPERTENSION
     Dosage: 10 MG, BID
     Route: 048
  2. FORASEQ [Suspect]
     Active Substance: BUDESONIDE\FORMOTEROL FUMARATE
     Indication: EMPHYSEMA
     Dosage: 1 DF, BID (400 MG)
     Route: 055
     Dates: end: 20140922
  3. INSULIN H NPH [Concomitant]
     Indication: DIABETES MELLITUS
     Dosage: 13 MG, QD (8 MG MORNING AND 5 MG AT NIGHT)
     Route: 058
  4. ONBREZ [Suspect]
     Active Substance: INDACATEROL
     Indication: EMPHYSEMA
     Dosage: 8 DF, MORNING (300 MG)
     Route: 055
     Dates: start: 20140922, end: 20141021
  5. FORASEQ [Suspect]
     Active Substance: BUDESONIDE\FORMOTEROL FUMARATE
     Dosage: 1 DF, BID (400 MG)
     Route: 055

REACTIONS (7)
  - Chest discomfort [Not Recovered/Not Resolved]
  - Hypersensitivity [Recovered/Resolved]
  - Renal neoplasm [Unknown]
  - Catarrh [Not Recovered/Not Resolved]
  - Wheezing [Recovered/Resolved]
  - Drug intolerance [Not Recovered/Not Resolved]
  - Productive cough [Recovered/Resolved]
